FAERS Safety Report 13014847 (Version 3)
Quarter: 2020Q2

REPORT INFORMATION
  Report Type: Spontaneous
  Country: AU (occurrence: AU)
  Receive Date: 20161209
  Receipt Date: 20200406
  Transmission Date: 20200713
  Serious: Yes (Other)
  Sender: FDA-Public Use
  Company Number: AU-BIOMARINAP-AU-2016-112115

PATIENT
  Age: 39 Year
  Sex: Female

DRUGS (1)
  1. ALDURAZYME [Suspect]
     Active Substance: LARONIDASE
     Indication: MUCOPOLYSACCHARIDOSIS I
     Route: 065

REACTIONS (4)
  - Cataract [Unknown]
  - Maculopathy [Unknown]
  - Retinal degeneration [Unknown]
  - Retinal disorder [Unknown]
